FAERS Safety Report 10666345 (Version 3)
Quarter: 2015Q1

REPORT INFORMATION
  Report Type: Report from Study
  Country: JP (occurrence: JP)
  Receive Date: 20141220
  Receipt Date: 20150305
  Transmission Date: 20150720
  Serious: Yes (Death)
  Sender: FDA-Public Use
  Company Number: JP-009507513-1412JPN009851

PATIENT
  Age: 64 Year
  Sex: Female

DRUGS (5)
  1. FIRSTCIN [Concomitant]
     Active Substance: CEFOZOPRAN HYDROCHLORIDE
     Indication: PNEUMONIA
     Dosage: 1 G, BID
     Route: 065
     Dates: start: 20141101, end: 20141118
  2. DIAZOXIDE CAPSULES 25 MG ^MSD^ [Suspect]
     Active Substance: DIAZOXIDE
     Indication: INSULINOMA
     Dosage: 150 MG, QD
     Route: 048
     Dates: start: 201409, end: 20141113
  3. RIFAMPIN. [Concomitant]
     Active Substance: RIFAMPIN
     Indication: ATYPICAL MYCOBACTERIAL INFECTION
     Dosage: 450 MG, QD
     Route: 048
     Dates: end: 20141118
  4. ESANBUTOL [Concomitant]
     Active Substance: ETHAMBUTOL HYDROCHLORIDE
     Indication: ATYPICAL MYCOBACTERIAL INFECTION
     Dosage: 750 MG, QD
     Route: 048
     Dates: end: 20141118
  5. CLARITH [Concomitant]
     Active Substance: CLARITHROMYCIN
     Indication: ATYPICAL MYCOBACTERIAL INFECTION
     Dosage: 400 MG, BID
     Route: 048
     Dates: end: 20141118

REACTIONS (1)
  - Pneumonia [Fatal]

NARRATIVE: CASE EVENT DATE: 2014
